FAERS Safety Report 9496449 (Version 1)
Quarter: 2013Q3

REPORT INFORMATION
  Report Type: Spontaneous
  Country: US (occurrence: None)
  Receive Date: 20130829
  Receipt Date: 20130829
  Transmission Date: 20140515
  Serious: Yes (Other)
  Sender: FDA-Public Use
  Company Number: ADR-2013-01509

PATIENT
  Age: 27 Year
  Sex: Male

DRUGS (1)
  1. BACLOFEN [Suspect]
     Indication: MUSCLE SPASTICITY

REACTIONS (9)
  - Infection [None]
  - Therapeutic response decreased [None]
  - Pneumonia [None]
  - Restlessness [None]
  - Posturing [None]
  - Discomfort [None]
  - Insomnia [None]
  - Hyperhidrosis [None]
  - Musculoskeletal stiffness [None]
